FAERS Safety Report 6189634-4 (Version None)
Quarter: 2009Q2

REPORT INFORMATION
  Report Type: 
  Country: None (occurrence: None)
  Receive Date: 20090514
  Receipt Date: 20090505
  Transmission Date: 20091009
  Serious: Yes (Other)
  Sender: FDA-Public Use
  Company Number: US-B.I. PHARMACEUTICALS,INC./RIDGEFIELD-2009-BP-05586BP

PATIENT
  Age: 16 Year
  Sex: Female

DRUGS (1)
  1. DULCOLAX [Suspect]
     Indication: WEIGHT DECREASED
     Dosage: 45MG
     Route: 048
     Dates: end: 20090503

REACTIONS (3)
  - ABDOMINAL DISTENSION [None]
  - DRUG ABUSE [None]
  - OVERDOSE [None]
